FAERS Safety Report 5234522-0 (Version None)
Quarter: 2007Q1

REPORT INFORMATION
  Report Type: 
  Country: None (occurrence: None)
  Receive Date: 20070209
  Receipt Date: 20070205
  Transmission Date: 20070707
  Serious: Yes (Other)
  Sender: FDA-Public Use
  Company Number: AU-MERCK-0702AUS00039

PATIENT
  Age: 76 Year
  Sex: Female

DRUGS (2)
  1. FOSAMAX [Suspect]
     Route: 065
  2. VERAPAMIL HYDROCHLORIDE [Suspect]
     Route: 065

REACTIONS (4)
  - GINGIVITIS [None]
  - MALOCCLUSION [None]
  - OSTEONECROSIS [None]
  - PERIODONTITIS [None]
